FAERS Safety Report 25681384 (Version 2)
Quarter: 2025Q3

REPORT INFORMATION
  Report Type: Spontaneous
  Country: US (occurrence: US)
  Receive Date: 20250814
  Receipt Date: 20250825
  Transmission Date: 20251021
  Serious: No
  Sender: BRISTOL-MYERS SQUIBB COMPANY
  Company Number: US-BRISTOL-MYERS SQUIBB COMPANY-2025-113175

PATIENT
  Age: 55 Year
  Sex: Male

DRUGS (2)
  1. THALOMID [Suspect]
     Active Substance: THALIDOMIDE
     Indication: Leprosy
     Dates: start: 20220108
  2. THALOMID [Suspect]
     Active Substance: THALIDOMIDE
     Indication: Skin exfoliation
     Dosage: TAKE 1 CAPSULE BY MOUTH FOUR TIMES A DAY FOR 7 DAYS
     Route: 048
     Dates: start: 202507

REACTIONS (2)
  - Arthralgia [Unknown]
  - Emergency care examination [Unknown]

NARRATIVE: CASE EVENT DATE: 20250501
